FAERS Safety Report 16822797 (Version 1)
Quarter: 2019Q3

REPORT INFORMATION
  Report Type: Report from Study
  Country: FR (occurrence: FR)
  Receive Date: 20190918
  Receipt Date: 20190918
  Transmission Date: 20191005
  Serious: Yes (Death, Hospitalization)
  Sender: FDA-Public Use
  Company Number: FR-PFIZER INC-2019364599

PATIENT
  Age: 70 Year
  Sex: Female
  Weight: 68 kg

DRUGS (3)
  1. FULVESTRANT. [Suspect]
     Active Substance: FULVESTRANT
     Indication: BREAST CANCER
  2. IBRANCE [Suspect]
     Active Substance: PALBOCICLIB
     Indication: BREAST CANCER
     Dosage: 100 MG, DAILY (3 WEEKS OUT OF 4)
     Dates: start: 20190206, end: 20190218
  3. IBRANCE [Suspect]
     Active Substance: PALBOCICLIB
     Dosage: 75 MG, DAILY (3 WEEKS OUT OF 4)
     Dates: start: 20190327, end: 20190416

REACTIONS (4)
  - Pancytopenia [Unknown]
  - General physical health deterioration [Fatal]
  - Psychomotor retardation [Fatal]
  - Disorientation [Fatal]
